FAERS Safety Report 23528744 (Version 1)
Quarter: 2024Q1

REPORT INFORMATION
  Report Type: Spontaneous
  Country: US (occurrence: US)
  Receive Date: 20240215
  Receipt Date: 20240215
  Transmission Date: 20240410
  Serious: No
  Sender: FDA-Public Use
  Company Number: US-ABBVIE-5639661

PATIENT
  Sex: Male

DRUGS (1)
  1. VRAYLAR [Suspect]
     Active Substance: CARIPRAZINE
     Indication: Product used for unknown indication
     Dosage: FORM STRENGTH: 4.5 MILLIGRAM
     Route: 048

REACTIONS (3)
  - Back pain [Unknown]
  - Sitting disability [Unknown]
  - Agitation [Unknown]

NARRATIVE: CASE EVENT DATE: 20240205
